FAERS Safety Report 5190650-X (Version None)
Quarter: 2006Q4

REPORT INFORMATION
  Report Type: 
  Country: None (occurrence: None)
  Receive Date: 20061222
  Receipt Date: 20061026
  Transmission Date: 20070319
  Serious: No
  Sender: FDA-Public Use
  Company Number: US-BRISTOL-MYERS SQUIBB COMPANY-13557475

PATIENT
  Age: 60 Year
  Sex: Male
  Weight: 88 kg

DRUGS (8)
  1. ORENCIA [Suspect]
     Indication: RHEUMATOID ARTHRITIS
     Route: 042
     Dates: start: 20060801
  2. CARDIZEM CD [Concomitant]
  3. ASPIRIN [Concomitant]
  4. HYTRIN [Concomitant]
  5. ATACAND [Concomitant]
  6. PLAQUENIL [Concomitant]
  7. MEVACOR [Concomitant]
  8. PREDNISONE TAB [Concomitant]

REACTIONS (1)
  - OEDEMA PERIPHERAL [None]
